FAERS Safety Report 6231286-9 (Version None)
Quarter: 2009Q2

REPORT INFORMATION
  Report Type: 
  Country: None (occurrence: None)
  Receive Date: 20090616
  Receipt Date: 20090605
  Transmission Date: 20091009
  Serious: Yes (Other)
  Sender: FDA-Public Use
  Company Number: BR-AVENTIS-200915735GDDC

PATIENT
  Age: 64 Month
  Sex: Female

DRUGS (1)
  1. ALLEGRA [Suspect]
     Indication: URTICARIA
     Dates: start: 20090601

REACTIONS (4)
  - BREATH SOUNDS [None]
  - HALLUCINATION [None]
  - TACHYCARDIA [None]
  - VOMITING [None]
